FAERS Safety Report 8154033-2 (Version None)
Quarter: 2012Q1

REPORT INFORMATION
  Report Type: 
  Country: None (occurrence: None)
  Receive Date: 20120221
  Receipt Date: 20120221
  Transmission Date: 20120608
  Serious: Yes (Life-Threatening)
  Sender: FDA-Public Use
  Company Number: None

PATIENT
  Age: 77 Year
  Sex: Female
  Weight: 65.317 kg

DRUGS (1)
  1. FOSAMAX [Suspect]
     Indication: BONE LOSS
     Dosage: I WOULD HAVE TO CONTACT DOCTOR

REACTIONS (1)
  - OESOPHAGEAL CARCINOMA [None]
